FAERS Safety Report 9943249 (Version 1)
Quarter: 2014Q1

REPORT INFORMATION
  Report Type: Report from Study
  Country: US (occurrence: US)
  Receive Date: 20140303
  Receipt Date: 20140303
  Transmission Date: 20141002
  Serious: Yes (Hospitalization)
  Sender: FDA-Public Use
  Company Number: US-GLAXOSMITHKLINE-Z0022232A

PATIENT
  Age: 57 Year
  Sex: Female
  Weight: 52.2 kg

DRUGS (4)
  1. TRAMETINIB [Suspect]
     Indication: COLORECTAL CANCER
     Dosage: 2MG PER DAY
     Route: 048
     Dates: start: 20140211
  2. DABRAFENIB [Suspect]
     Indication: COLORECTAL CANCER
     Dosage: 150MG TWICE PER DAY
     Route: 048
     Dates: start: 20140211
  3. PANITUMUMAB [Suspect]
     Indication: COLORECTAL CANCER
     Dosage: 313MG EVERY TWO WEEKS
     Route: 042
     Dates: start: 20140211
  4. SIMVASTATIN [Concomitant]

REACTIONS (2)
  - Alanine aminotransferase increased [Recovering/Resolving]
  - Aspartate aminotransferase increased [Recovering/Resolving]
